FAERS Safety Report 16775921 (Version 4)
Quarter: 2019Q4

REPORT INFORMATION
  Report Type: Spontaneous
  Country: US (occurrence: US)
  Receive Date: 20190905
  Receipt Date: 20191209
  Transmission Date: 20200122
  Serious: Yes (Other)
  Sender: FDA-Public Use
  Company Number: US-PFIZER INC-2019383120

PATIENT
  Age: 77 Year
  Sex: Female
  Weight: 86 kg

DRUGS (4)
  1. XELJANZ [Suspect]
     Active Substance: TOFACITINIB CITRATE
     Dosage: 5 MG, UNK (60 TAB BOTTLE)
     Route: 048
  2. XELJANZ [Suspect]
     Active Substance: TOFACITINIB CITRATE
     Dosage: 10 MG, ONCE A DAY
     Route: 048
     Dates: start: 2018, end: 201906
  3. XELJANZ [Suspect]
     Active Substance: TOFACITINIB CITRATE
     Indication: PSORIATIC ARTHROPATHY
     Dosage: 5 MG, TWICE A DAY (10MG DOSAGE DAILY)
     Route: 048
  4. HYDROXYUREA. [Concomitant]
     Active Substance: HYDROXYUREA
     Indication: LEUKAEMIA
     Dosage: 500 MG, 2X/DAY
     Route: 048

REACTIONS (16)
  - Functional gastrointestinal disorder [Unknown]
  - Pain in extremity [Unknown]
  - Blister [Unknown]
  - Renal disorder [Unknown]
  - Swelling [Unknown]
  - Psoriatic arthropathy [Unknown]
  - Lymphadenopathy [Unknown]
  - Limb discomfort [Unknown]
  - Back pain [Unknown]
  - Nerve injury [Not Recovered/Not Resolved]
  - Herpes zoster [Recovered/Resolved with Sequelae]
  - Haematochezia [Unknown]
  - Acne [Unknown]
  - Polyp [Unknown]
  - Arthralgia [Unknown]
  - Malaise [Unknown]

NARRATIVE: CASE EVENT DATE: 201904
